FAERS Safety Report 8742327 (Version 2)
Quarter: 2012Q4

REPORT INFORMATION
  Report Type: 
  Country: US (occurrence: US)
  Receive Date: 20120824
  Receipt Date: 20121226
  Transmission Date: 20130627
  Serious: Yes (Hospitalization)
  Sender: FDA-Public Use
  Company Number: US-BAYER-2012-085891

PATIENT
  Age: 58 Year
  Sex: Female
  Weight: 83.9 kg

DRUGS (26)
  1. YAZ [Suspect]
     Dosage: UNK
     Dates: start: 20061116, end: 20071102
  2. YAZ [Suspect]
     Dosage: UNK
     Dates: start: 20080717, end: 20111123
  3. VICODIN [Concomitant]
     Dosage: PRN
  4. XYZAL [Concomitant]
     Dosage: 5 mg, UNK
  5. COMPAZINE [Concomitant]
     Dosage: 5 mg, PRN
  6. TRIAMCINOLONE [Concomitant]
     Dosage: 0.5 %, PRN
  7. SINGULAIR [Concomitant]
     Dosage: 10 mg, UNK
  8. ADVAIR [Concomitant]
  9. SYNTHROID [Concomitant]
     Dosage: 137 mcg daily
  10. ALBUTEROL INHALER [Concomitant]
  11. PROZAC [Concomitant]
     Dosage: 20 mg, BID
  12. BENADRYL [Concomitant]
     Indication: SNEEZING
  13. CLARITIN [Concomitant]
     Dosage: PRN
  14. SULAE [Concomitant]
     Dosage: PRN
  15. DIAZEPAM [Concomitant]
     Dosage: PRN
  16. AMBIEN [Concomitant]
     Dosage: PRN
  17. CELEBREX [Concomitant]
     Dosage: 2 per day
  18. EDARBI [Concomitant]
     Dosage: 80 mg, UNK
  19. EDARBI [Concomitant]
     Dosage: 1 per day
  20. AGGRENOX [Concomitant]
  21. ZOCOR [Concomitant]
  22. LEVOTHYROXINE [Concomitant]
  23. PEPCID [Concomitant]
  24. LORAZEPAM [Concomitant]
  25. FLUOXETINE [Concomitant]
  26. TRAMADOL [Concomitant]

REACTIONS (7)
  - Ischaemic stroke [None]
  - Ischaemic stroke [None]
  - Monoparesis [None]
  - Monoparesis [None]
  - Depression [None]
  - Anxiety [None]
  - Off label use [None]
